FAERS Safety Report 5084937-9 (Version None)
Quarter: 2006Q3

REPORT INFORMATION
  Report Type: 
  Country: None (occurrence: None)
  Receive Date: 20060815
  Receipt Date: 20060729
  Transmission Date: 20061208
  Serious: Yes (Hospitalization)
  Sender: FDA-Public Use
  Company Number: 2006PV018420

PATIENT
  Age: 69 Year
  Sex: Female
  Weight: 131.5431 kg

DRUGS (10)
  1. BYETTA [Suspect]
     Indication: WEIGHT CONTROL
     Dosage: 10 MCG BID SC ; 5 MCG BID SC ; 10 MCG QAM SC ; 5 MCG BID SC
     Route: 058
     Dates: start: 20060606, end: 20060601
  2. BYETTA [Suspect]
     Indication: WEIGHT CONTROL
     Dosage: 10 MCG BID SC ; 5 MCG BID SC ; 10 MCG QAM SC ; 5 MCG BID SC
     Route: 058
     Dates: start: 20060601, end: 20060725
  3. BYETTA [Suspect]
     Indication: WEIGHT CONTROL
     Dosage: 10 MCG BID SC ; 5 MCG BID SC ; 10 MCG QAM SC ; 5 MCG BID SC
     Route: 058
     Dates: start: 20060601, end: 20060725
  4. BYETTA [Suspect]
     Indication: WEIGHT CONTROL
     Dosage: 10 MCG BID SC ; 5 MCG BID SC ; 10 MCG QAM SC ; 5 MCG BID SC
     Route: 058
     Dates: start: 20060726
  5. ADVAIR DISKUS 100/50 [Suspect]
     Indication: ASTHMA
     Dosage: 500 MCG INH
     Route: 055
     Dates: start: 20060401, end: 20060704
  6. ZANTAC [Concomitant]
  7. PREVACID [Concomitant]
  8. COZAAR [Concomitant]
  9. SINUS PILL [Concomitant]
  10. SINGULAIR [Concomitant]

REACTIONS (8)
  - ALCOHOL USE [None]
  - ATRIAL FIBRILLATION [None]
  - DYSPEPSIA [None]
  - ERUCTATION [None]
  - HEART RATE INCREASED [None]
  - NAUSEA [None]
  - REGURGITATION OF FOOD [None]
  - WEIGHT DECREASED [None]
